FAERS Safety Report 23406011 (Version 2)
Quarter: 2024Q4

REPORT INFORMATION
  Report Type: Spontaneous
  Country: US (occurrence: US)
  Receive Date: 20240116
  Receipt Date: 20241019
  Transmission Date: 20250115
  Serious: No
  Sender: SANDOZ
  Company Number: US-SANDOZ-SDZ2024US004309

PATIENT
  Sex: Female

DRUGS (1)
  1. RITALIN [Suspect]
     Active Substance: METHYLPHENIDATE HYDROCHLORIDE
     Indication: Product used for unknown indication
     Dosage: STRENGTH 30 MG
     Route: 065

REACTIONS (4)
  - Drug ineffective [Unknown]
  - Adverse event [Unknown]
  - Conversion disorder [Unknown]
  - Abnormal behaviour [Unknown]
